FAERS Safety Report 5861746-1 (Version None)
Quarter: 2008Q3

REPORT INFORMATION
  Report Type: 
  Country: None (occurrence: None)
  Receive Date: 20080826
  Receipt Date: 20080812
  Transmission Date: 20090109
  Serious: Yes (Death, Hospitalization)
  Sender: FDA-Public Use
  Company Number: SPV1-2008-01376

PATIENT
  Age: 81 Year
  Sex: Female
  Weight: 60 kg

DRUGS (9)
  1. ANAGRELIDE HYDROCHLORIDE [Suspect]
     Dates: end: 20080601
  2. PANTOPRAZOLE SODIUM [Concomitant]
  3. CLOPIDOGREL [Concomitant]
  4. ALLOPURINOL [Concomitant]
  5. AMLODIPINE [Concomitant]
  6. MORPHINE SULFATE [Concomitant]
  7. TORSEMIDE [Concomitant]
  8. HCT (HYDROCHLOROTHIAZIDE) [Concomitant]
  9. ZOPICLONE (ZOPICLONE) [Concomitant]

REACTIONS (4)
  - DRUG ERUPTION [None]
  - PSEUDOMONAS INFECTION [None]
  - SKIN ULCER [None]
  - STAPHYLOCOCCAL SKIN INFECTION [None]
